FAERS Safety Report 12788105 (Version 1)
Quarter: 2016Q3

REPORT INFORMATION
  Report Type: Spontaneous
  Country: US (occurrence: US)
  Receive Date: 20160928
  Receipt Date: 20160928
  Transmission Date: 20161109
  Serious: No
  Sender: FDA-Public Use
  Company Number: PHHY2016US133200

PATIENT
  Age: 25 Year
  Sex: Female

DRUGS (1)
  1. CAMBIA [Suspect]
     Active Substance: DICLOFENAC POTASSIUM
     Indication: HEADACHE
     Dosage: 50 MG, SINGLE (TAKE ONE PACKET BY MOUTH ON AN EMPTY STOMACH AT ONSET OF HEADACHE, MAXIMUM 1 PER DAY)
     Route: 048
     Dates: start: 20160518, end: 20160921

REACTIONS (2)
  - Drug ineffective for unapproved indication [Unknown]
  - Product use issue [Unknown]

NARRATIVE: CASE EVENT DATE: 2016
